FAERS Safety Report 5104699-6 (Version None)
Quarter: 2006Q3

REPORT INFORMATION
  Report Type: 
  Country: None (occurrence: None)
  Receive Date: 20060731
  Receipt Date: 20050818
  Transmission Date: 20061208
  Serious: Yes (Other)
  Sender: FDA-Public Use
  Company Number: US-JNJFOC-20050603353

PATIENT
  Age: 44 Year
  Sex: Male
  Weight: 150.5942 kg

DRUGS (5)
  1. RISPERDAL [Suspect]
     Indication: BIPOLAR DISORDER
     Dosage: 2 MG, 2 IN 1 DAY , ORAL
     Route: 048
     Dates: start: 20000101
  2. COGENTIN [Concomitant]
  3. HYDROCHLOROTHIAZIDE [Concomitant]
  4. TRAZODONE HCL [Concomitant]
  5. PHENTERMINE [Concomitant]

REACTIONS (3)
  - DIABETES MELLITUS [None]
  - EYE MOVEMENT DISORDER [None]
  - VISION BLURRED [None]
